FAERS Safety Report 8796124 (Version 1)
Quarter: 2012Q4

REPORT INFORMATION
  Report Type: 
  Country: JP (occurrence: JP)
  Receive Date: 20120919
  Receipt Date: 20120919
  Transmission Date: 20130627
  Serious: Yes (Hospitalization)
  Sender: FDA-Public Use
  Company Number: JP-ASTRAZENECA-2012SE57714

PATIENT
  Age: 88 Year
  Sex: Female

DRUGS (1)
  1. TENORMIN [Suspect]
     Indication: HYPERTENSION
     Route: 048
     Dates: start: 2002, end: 20120813

REACTIONS (4)
  - Heat illness [Unknown]
  - Oliguria [Unknown]
  - Renal failure [Unknown]
  - Bradycardia [Recovered/Resolved]
